FAERS Safety Report 7052586-9 (Version None)
Quarter: 2010Q4

REPORT INFORMATION
  Report Type: 
  Country: None (occurrence: None)
  Receive Date: 20101019
  Receipt Date: 20101018
  Transmission Date: 20110411
  Serious: Yes (Hospitalization)
  Sender: FDA-Public Use
  Company Number: DE-ABBOTT-10P-062-0676632-00

PATIENT
  Sex: Female
  Weight: 51 kg

DRUGS (10)
  1. HUMIRA [Suspect]
     Indication: CROHN'S DISEASE
     Route: 058
     Dates: start: 20100730
  2. DURAGESIC-100 [Concomitant]
     Indication: PAIN
     Route: 062
  3. PREDNISOLONE [Concomitant]
     Indication: CROHN'S DISEASE
     Route: 048
  4. LEVOTHYROXINE SODIUM [Concomitant]
     Indication: HYPOTHYROIDISM
     Route: 048
  5. 5-ASA/SULFASALAZIN [Concomitant]
     Indication: PRODUCT USED FOR UNKNOWN INDICATION
  6. BUDESONIDE [Concomitant]
     Indication: CROHN'S DISEASE
     Dosage: ORAL/LOCAL
     Route: 048
  7. SYSTEMIC STEROIDS [Concomitant]
     Indication: CROHN'S DISEASE
     Dosage: ONCE PER YEAR DURING PAST 3 YEARS
  8. AZATHIOPRIN/6-MP [Concomitant]
     Indication: CROHN'S DISEASE
     Dosage: 2-2.5MG/KG BODY WEIGHT
  9. METHOTREXATE [Concomitant]
     Indication: CROHN'S DISEASE
     Route: 058
  10. REMICADE [Concomitant]
     Indication: PRODUCT USED FOR UNKNOWN INDICATION

REACTIONS (2)
  - GENERAL PHYSICAL HEALTH DETERIORATION [None]
  - PYREXIA [None]
